FAERS Safety Report 13163948 (Version 4)
Quarter: 2017Q1

REPORT INFORMATION
  Report Type: Report from Study
  Country: CA (occurrence: CA)
  Receive Date: 20170130
  Receipt Date: 20170311
  Transmission Date: 20170428
  Serious: Yes (Hospitalization)
  Sender: FDA-Public Use
  Company Number: CA-B.I. PHARMACEUTICALS,INC./RIDGEFIELD-2016-BI-63417CN

PATIENT
  Age: 79 Year
  Sex: Male

DRUGS (2)
  1. OFEV [Suspect]
     Active Substance: NINTEDANIB
     Route: 048
  2. OFEV [Suspect]
     Active Substance: NINTEDANIB
     Indication: IDIOPATHIC PULMONARY FIBROSIS
     Route: 048
     Dates: start: 20160926, end: 20170118

REACTIONS (21)
  - Productive cough [Recovered/Resolved]
  - Diarrhoea [Recovered/Resolved]
  - Diarrhoea [Recovered/Resolved]
  - Nausea [Recovered/Resolved]
  - Constipation [Recovered/Resolved]
  - Diarrhoea [Not Recovered/Not Resolved]
  - Diarrhoea [Unknown]
  - Diarrhoea [Recovered/Resolved]
  - Vomiting [Recovered/Resolved]
  - Diarrhoea [Unknown]
  - Decreased appetite [Not Recovered/Not Resolved]
  - Vomiting [Recovered/Resolved]
  - Vomiting [Unknown]
  - Hospitalisation [Unknown]
  - Productive cough [Not Recovered/Not Resolved]
  - Weight decreased [Unknown]
  - Diarrhoea [Recovered/Resolved]
  - Weight decreased [Not Recovered/Not Resolved]
  - Abdominal pain [Recovered/Resolved]
  - Diarrhoea [Recovered/Resolved]
  - Fatigue [Not Recovered/Not Resolved]

NARRATIVE: CASE EVENT DATE: 20160927
